FAERS Safety Report 16945113 (Version 2)
Quarter: 2019Q4

REPORT INFORMATION
  Report Type: Spontaneous
  Country: US (occurrence: US)
  Receive Date: 20191022
  Receipt Date: 20191114
  Transmission Date: 20200122
  Serious: No
  Sender: FDA-Public Use
  Company Number: US-JNJFOC-20191029626

PATIENT
  Age: 79 Year
  Sex: Male
  Weight: 99.88 kg

DRUGS (7)
  1. SPIRONOLACTONE. [Concomitant]
     Active Substance: SPIRONOLACTONE
     Route: 065
  2. WARFARIN [Concomitant]
     Active Substance: WARFARIN
     Route: 065
  3. PRAVASTATIN. [Concomitant]
     Active Substance: PRAVASTATIN
     Route: 065
  4. DIGOXIN. [Concomitant]
     Active Substance: DIGOXIN
     Route: 065
  5. LISINOPRIL. [Concomitant]
     Active Substance: LISINOPRIL
     Route: 065
  6. ZYTIGA [Suspect]
     Active Substance: ABIRATERONE ACETATE
     Indication: PROSTATE CANCER
     Route: 048
     Dates: start: 201904
  7. ZYTIGA [Suspect]
     Active Substance: ABIRATERONE ACETATE
     Route: 048

REACTIONS (2)
  - Abnormal loss of weight [Not Recovered/Not Resolved]
  - Prostatic specific antigen increased [Not Recovered/Not Resolved]

NARRATIVE: CASE EVENT DATE: 201910
